FAERS Safety Report 8616933-6 (Version None)
Quarter: 2012Q3

REPORT INFORMATION
  Report Type: 
  Country: None (occurrence: None)
  Receive Date: 20120823
  Receipt Date: 20120815
  Transmission Date: 20120928
  Serious: Yes (Hospitalization)
  Sender: FDA-Public Use
  Company Number: PHHO2012US010356

PATIENT
  Sex: Male
  Weight: 100.7 kg

DRUGS (35)
  1. FLUOROURACIL [Suspect]
     Indication: SQUAMOUS CELL CARCINOMA
     Dosage: 1400 MG/24HRS CIV OVER 120 HOURS
     Route: 042
     Dates: start: 20120701, end: 20120706
  2. FENTANYL [Concomitant]
  3. NEOSPORIN (NEOMYCIN SULFATE/POLYMYXIN B SULFATE) [Concomitant]
  4. SENNA [Concomitant]
  5. PACLITAXEL [Suspect]
     Dosage: 228 MG QWK
     Route: 042
     Dates: start: 20120715, end: 20120720
  6. BACITRACIN [Concomitant]
  7. FILGRASTIM [Concomitant]
  8. MORPHINE [Concomitant]
  9. FAMOTIDINE [Concomitant]
  10. FLUCONAZOLE [Concomitant]
  11. EUCERIN [Concomitant]
  12. FLUOROURACIL [Suspect]
     Dosage: UNK
     Route: 042
     Dates: start: 20120729
  13. HYDROXYUREA [Suspect]
     Dosage: UNK
     Route: 048
     Dates: start: 20120729
  14. PROCHLORPERAZINE [Concomitant]
  15. ESOMEPRAZOLE SODIUM [Concomitant]
  16. FLUOROURACIL [Suspect]
     Dosage: 1400 MG/24HRS CIV OVER 120 HOURS
     Route: 042
     Dates: start: 20120715, end: 20120720
  17. BLINDED NO TREATMENT RECEIVED [Suspect]
     Indication: SQUAMOUS CELL CARCINOMA
     Dosage: NO TREATMENT
  18. GUAIFENESIN [Concomitant]
  19. ENOXAPARIN [Concomitant]
     Dosage: UNK
  20. PLACEBO [Suspect]
     Indication: SQUAMOUS CELL CARCINOMA
     Dosage: NO TREATMENT
  21. AMOXICILLIN AND CLAVULANATE POTASSIUM [Concomitant]
  22. MIRALAX [Concomitant]
  23. LIDOCAINE [Concomitant]
  24. PACLITAXEL [Suspect]
     Dosage: UNK
     Route: 042
     Dates: start: 20120729
  25. AFINITOR [Suspect]
     Indication: SQUAMOUS CELL CARCINOMA
     Dosage: NO TREATMENT
  26. HYDROXYUREA [Suspect]
     Dosage: 500 MG, BID
     Route: 048
     Dates: start: 20120715, end: 20120720
  27. ESCITALOPRAM [Concomitant]
  28. ONDANSETRON [Concomitant]
  29. ROSUVASTATIN [Concomitant]
  30. DOCUSATE [Concomitant]
  31. PACLITAXEL [Suspect]
     Indication: SQUAMOUS CELL CARCINOMA
     Dosage: 228 MG QWK
     Route: 042
     Dates: start: 20120702
  32. AQUAPHOR [Concomitant]
  33. HYDROMORPHONE HYDROCHLORIDE [Concomitant]
  34. HYDROXYUREA [Suspect]
     Indication: SQUAMOUS CELL CARCINOMA
     Dosage: 500 MG, BID
     Route: 048
     Dates: start: 20120701, end: 20120706
  35. NYSTATIN [Concomitant]

REACTIONS (2)
  - NAUSEA [None]
  - DEHYDRATION [None]
